FAERS Safety Report 9057285 (Version 1)
Quarter: 2013Q1

REPORT INFORMATION
  Report Type: Report from Study
  Country: JP (occurrence: JP)
  Receive Date: 20130131
  Receipt Date: 20130131
  Transmission Date: 20140127
  Serious: Yes (Other)
  Sender: FDA-Public Use
  Company Number: JP-GLAXOSMITHKLINE-B0860485A

PATIENT
  Age: 60 None
  Sex: Female
  Weight: 37 kg

DRUGS (3)
  1. TYKERB [Suspect]
     Indication: BREAST CANCER
     Route: 048
     Dates: start: 20091014, end: 20091019
  2. TYKERB [Suspect]
     Indication: BREAST CANCER
     Route: 048
     Dates: start: 20091102, end: 20100223
  3. XELODA [Suspect]
     Route: 048
     Dates: start: 20091014, end: 20100223

REACTIONS (3)
  - Pericardial effusion [Not Recovered/Not Resolved]
  - Rash [Recovering/Resolving]
  - Hepatic function abnormal [Recovered/Resolved]
